FAERS Safety Report 10812110 (Version 1)
Quarter: 2015Q1

REPORT INFORMATION
  Report Type: Spontaneous
  Country: US (occurrence: None)
  Receive Date: 20150212
  Receipt Date: 20150212
  Transmission Date: 20150721
  Serious: Yes (Other)
  Sender: FDA-Public Use
  Company Number: None

PATIENT
  Age: 39 Year
  Sex: Female
  Weight: 49.9 kg

DRUGS (1)
  1. MIRENA [Suspect]
     Active Substance: LEVONORGESTREL
     Dates: start: 20130709, end: 20130816

REACTIONS (4)
  - Fungal infection [None]
  - Vaginal haemorrhage [None]
  - Agitation [None]
  - pH body fluid abnormal [None]

NARRATIVE: CASE EVENT DATE: 20130709
